FAERS Safety Report 6426501-2 (Version None)
Quarter: 2009Q4

REPORT INFORMATION
  Report Type: 
  Country: None (occurrence: None)
  Receive Date: 20091030
  Receipt Date: 20091022
  Transmission Date: 20100525
  Serious: Yes (Hospitalization)
  Sender: FDA-Public Use
  Company Number: 2009AL006771

PATIENT
  Age: 53 Year
  Sex: Female

DRUGS (1)
  1. PROPYLTHIOURACIL TAB [Suspect]
     Indication: HYPERTHYROIDISM
     Dosage: 900 MG;QD

REACTIONS (5)
  - ANAL ABSCESS [None]
  - BONE MARROW FAILURE [None]
  - FEBRILE NEUTROPENIA [None]
  - HEART RATE INCREASED [None]
  - RASH [None]
